FAERS Safety Report 15821855 (Version 1)
Quarter: 2019Q1

REPORT INFORMATION
  Report Type: Spontaneous
  Country: US (occurrence: US)
  Receive Date: 20190114
  Receipt Date: 20190114
  Transmission Date: 20190417
  Serious: No
  Sender: FDA-Public Use
  Company Number: US-BEH-2019098420

PATIENT
  Age: 32 Year
  Sex: Male

DRUGS (1)
  1. AFSTYLA ANTIHEMOPHILIC FACTOR (RECOMBINANT), SINGLE CHAIN [Suspect]
     Active Substance: ANTIHEMOPHILIC FACTOR, HUMAN RECOMBINANT
     Indication: HAEMOPHILIA
     Dosage: 2000 IU, BIW
     Route: 042
     Dates: start: 20161116

REACTIONS (2)
  - Depression [Unknown]
  - Mood swings [Unknown]

NARRATIVE: CASE EVENT DATE: 20161116
